FAERS Safety Report 12588868 (Version 1)
Quarter: 2016Q3

REPORT INFORMATION
  Report Type: Spontaneous
  Country: US (occurrence: US)
  Receive Date: 20160725
  Receipt Date: 20160725
  Transmission Date: 20161109
  Serious: No
  Sender: FDA-Public Use
  Company Number: US-JNJFOC-20160621965

PATIENT
  Age: 76 Year
  Sex: Female

DRUGS (2)
  1. TYLENOL [Suspect]
     Active Substance: ACETAMINOPHEN
     Indication: MUSCLE STRAIN
     Dosage: 1 TYLENOL CAPLET UP TO 2X A DAY AS SHE NEEDS
     Route: 065
  2. TYLENOL [Suspect]
     Active Substance: ACETAMINOPHEN
     Indication: ARTHRITIS
     Dosage: 1 TYLENOL CAPLET UP TO 2X A DAY AS SHE NEEDS
     Route: 065

REACTIONS (1)
  - Incorrect dose administered [Unknown]
